FAERS Safety Report 8799880 (Version 2)
Quarter: 2012Q4

REPORT INFORMATION
  Report Type: 
  Country: US (occurrence: US)
  Receive Date: 20120919
  Receipt Date: 20121029
  Transmission Date: 20130627
  Serious: Yes (Hospitalization)
  Sender: FDA-Public Use
  Company Number: US-009507513-1209USA005051

PATIENT
  Age: 57 None
  Sex: Female
  Weight: 58.5 kg

DRUGS (5)
  1. SINGULAIR [Suspect]
     Indication: HYPERSENSITIVITY
     Dosage: 10 mg, once a day
     Route: 048
     Dates: start: 200609, end: 20120612
  2. LEVOTHYROXINE SODIUM [Concomitant]
  3. SYNTHROID [Concomitant]
  4. SYMBICORD [Concomitant]
  5. MONTEST [Concomitant]

REACTIONS (4)
  - Alopecia [Not Recovered/Not Resolved]
  - Anxiety [Not Recovered/Not Resolved]
  - Palpitations [Not Recovered/Not Resolved]
  - Paraesthesia [Not Recovered/Not Resolved]
